FAERS Safety Report 16941213 (Version 2)
Quarter: 2019Q4

REPORT INFORMATION
  Report Type: Spontaneous
  Country: ES (occurrence: ES)
  Receive Date: 20191021
  Receipt Date: 20191113
  Transmission Date: 20200122
  Serious: Yes (Other)
  Sender: FDA-Public Use
  Company Number: ES-SA-2019SA287473

PATIENT
  Sex: Female
  Weight: 69 kg

DRUGS (1)
  1. LANTUS [Suspect]
     Active Substance: INSULIN GLARGINE
     Indication: TYPE 2 DIABETES MELLITUS
     Dosage: UNK
     Route: 058
     Dates: start: 2017

REACTIONS (3)
  - Cerebrovascular accident [Recovered/Resolved]
  - Diabetes mellitus inadequate control [Recovered/Resolved]
  - Coronary artery disease [Recovering/Resolving]
